FAERS Safety Report 9530399 (Version 1)
Quarter: 2013Q3

REPORT INFORMATION
  Report Type: Spontaneous
  Country: US (occurrence: US)
  Receive Date: 20130918
  Receipt Date: 20130918
  Transmission Date: 20140515
  Serious: No
  Sender: FDA-Public Use
  Company Number: US-009507513-1309USA005598

PATIENT
  Sex: Female

DRUGS (3)
  1. JANUMET [Suspect]
     Indication: TYPE 2 DIABETES MELLITUS
     Dosage: 1 TABLET TWICE DAILY IN THE MORNING AND EVENING
     Route: 048
     Dates: start: 201209
  2. METOPROLOL [Concomitant]
  3. CYMBALTA [Concomitant]

REACTIONS (3)
  - Peripheral coldness [Unknown]
  - Heart rate irregular [Unknown]
  - Drug dose omission [Unknown]
